FAERS Safety Report 9776987 (Version 1)
Quarter: 2013Q4

REPORT INFORMATION
  Report Type: Spontaneous
  Country: GB (occurrence: GB)
  Receive Date: 20131221
  Receipt Date: 20131221
  Transmission Date: 20140711
  Serious: Yes (Other)
  Sender: FDA-Public Use
  Company Number: GB-ACCORD-020805

PATIENT
  Sex: Male

DRUGS (1)
  1. CLOPIDOGREL [Suspect]
     Indication: ATRIAL FIBRILLATION
     Dosage: FORM : UNKNOWN
     Route: 065

REACTIONS (3)
  - Diabetes mellitus [Unknown]
  - Myocardial infarction [Unknown]
  - Hypertension [Unknown]
